FAERS Safety Report 18576676 (Version 1)
Quarter: 2020Q4

REPORT INFORMATION
  Report Type: Spontaneous
  Country: PL (occurrence: PL)
  Receive Date: 20201203
  Receipt Date: 20201203
  Transmission Date: 20210114
  Serious: Yes (Hospitalization, Other)
  Sender: FDA-Public Use
  Company Number: PL-MYLANLABS-2020M1099120

PATIENT
  Sex: Male

DRUGS (1)
  1. ZOLEDRONIC ACID [Suspect]
     Active Substance: ZOLEDRONIC ACID
     Indication: PROSTATE CANCER
     Route: 065
     Dates: start: 2005, end: 2009

REACTIONS (3)
  - Osteitis [Recovering/Resolving]
  - Fistula [Recovered/Resolved]
  - Bone sequestrum [Recovered/Resolved]

NARRATIVE: CASE EVENT DATE: 2017
